FAERS Safety Report 8910407 (Version 2)
Quarter: 2013Q1

REPORT INFORMATION
  Report Type: Report from Study
  Country: US (occurrence: US)
  Receive Date: 20121115
  Receipt Date: 20130122
  Transmission Date: 20140127
  Serious: Yes (Hospitalization)
  Sender: FDA-Public Use
  Company Number: US-ACTELION-A-NJ2012-74632

PATIENT
  Age: 64 Year
  Sex: Female

DRUGS (3)
  1. COUMADIN [Concomitant]
  2. SILDENAFIL [Concomitant]
     Dosage: UNK
  3. VENTAVIS [Suspect]
     Indication: PULMONARY ARTERIAL HYPERTENSION
     Dosage: UNK
     Route: 055
     Dates: start: 20070428

REACTIONS (1)
  - Device related infection [Recovering/Resolving]
